FAERS Safety Report 14628839 (Version 1)
Quarter: 2018Q1

REPORT INFORMATION
  Report Type: Spontaneous
  Country: DE (occurrence: DE)
  Receive Date: 20180313
  Receipt Date: 20180313
  Transmission Date: 20180509
  Serious: Yes (Other)
  Sender: FDA-Public Use
  Company Number: DE-ROCHE-2085708

PATIENT

DRUGS (8)
  1. BORTEZOMIB [Suspect]
     Active Substance: BORTEZOMIB
     Indication: CHRONIC ALLOGRAFT NEPHROPATHY
     Route: 065
  2. TACROLIMUS. [Suspect]
     Active Substance: TACROLIMUS
     Indication: RENAL TRANSPLANT
     Dosage: UNK
     Route: 065
  3. BORTEZOMIB [Suspect]
     Active Substance: BORTEZOMIB
     Indication: KIDNEY TRANSPLANT REJECTION
     Dosage: UNK
     Route: 065
  4. ANTITHYMOCYTE IMMUNOGLOBULIN [Suspect]
     Active Substance: THYMOCYTE IMMUNE GLOBULIN NOS
     Indication: RENAL TRANSPLANT
     Dosage: UNK
     Route: 065
  5. RITUXIMAB. [Suspect]
     Active Substance: RITUXIMAB
     Indication: CHRONIC ALLOGRAFT NEPHROPATHY
     Route: 065
  6. MYCOPHENOLIC ACID. [Suspect]
     Active Substance: MYCOPHENOLIC ACID
     Indication: RENAL TRANSPLANT
     Dosage: UNK
     Route: 065
  7. ANTITHYMOCYTE IMMUNOGLOBULIN [Suspect]
     Active Substance: THYMOCYTE IMMUNE GLOBULIN NOS
     Indication: KIDNEY TRANSPLANT REJECTION
  8. RITUXIMAB. [Suspect]
     Active Substance: RITUXIMAB
     Indication: KIDNEY TRANSPLANT REJECTION
     Dosage: UNK
     Route: 065

REACTIONS (3)
  - Product use in unapproved indication [Unknown]
  - Transplant rejection [Unknown]
  - Drug resistance [Unknown]
